FAERS Safety Report 4510356-7 (Version None)
Quarter: 2004Q4

REPORT INFORMATION
  Report Type: 
  Country: None (occurrence: None)
  Receive Date: 20041122
  Receipt Date: 20041122
  Transmission Date: 20050328
  Serious: No
  Sender: FDA-Public Use
  Company Number: None

PATIENT
  Age: 55 Year
  Sex: Male

DRUGS (2)
  1. WELLBUTRIN SR [Suspect]
     Dosage: TABLET
  2. WELLBUTRIN SR [Suspect]
     Dosage: TABLET

REACTIONS (4)
  - DIZZINESS [None]
  - INSOMNIA [None]
  - LETHARGY [None]
  - MEDICATION ERROR [None]
